FAERS Safety Report 7717613-1 (Version None)
Quarter: 2011Q3

REPORT INFORMATION
  Report Type: 
  Country: None (occurrence: None)
  Receive Date: 20110824
  Receipt Date: 20110818
  Transmission Date: 20111222
  Serious: Yes (Disabling, Other)
  Sender: FDA-Public Use
  Company Number: ACO_26186_2011

PATIENT
  Age: 58 Year
  Sex: Female

DRUGS (12)
  1. VYTORIN [Concomitant]
  2. VITAMIN D [Concomitant]
  3. SUPER B COMPLEX WITH VITAMIN C (ASCORBIC ACID, VITAMIN B COMPLEX) [Concomitant]
  4. GABAPENTIN [Concomitant]
  5. VENLAFAXINE [Concomitant]
  6. OXYBUTYNIN [Concomitant]
  7. REBIF [Concomitant]
  8. LORAZEPAM [Concomitant]
  9. AMPYRA [Suspect]
     Indication: GAIT DISTURBANCE
     Dosage: 10 MG, BID
     Dates: start: 20110605, end: 20110619
  10. TIZANIDINE HCL [Concomitant]
  11. SYNTHROID [Concomitant]
  12. JOINTELL (GEMFIBROZIL) [Concomitant]

REACTIONS (3)
  - HYPOAESTHESIA [None]
  - MUSCLE SPASMS [None]
  - HEARING IMPAIRED [None]
